FAERS Safety Report 24097983 (Version 1)
Quarter: 2024Q3

REPORT INFORMATION
  Report Type: Spontaneous
  Country: US (occurrence: None)
  Receive Date: 20240716
  Receipt Date: 20240716
  Transmission Date: 20241016
  Serious: No
  Sender: Public
  Company Number: None

PATIENT
  Age: 9 Year
  Sex: Male

DRUGS (3)
  1. MONTELUKAST SODIUM [Suspect]
     Active Substance: MONTELUKAST SODIUM
     Indication: Multiple allergies
     Dosage: 1 TABLET AT BEDTIME ORAL
     Route: 048
     Dates: start: 20240701, end: 20240715
  2. FLUTICASONE [Concomitant]
     Active Substance: FLUTICASONE
  3. Kids Multi gummy worms [Concomitant]

REACTIONS (3)
  - Crying [None]
  - Emotional disorder [None]
  - Therapy cessation [None]

NARRATIVE: CASE EVENT DATE: 20240714
